FAERS Safety Report 5873318-3 (Version None)
Quarter: 2008Q3

REPORT INFORMATION
  Report Type: 
  Country: None (occurrence: None)
  Receive Date: 20080904
  Receipt Date: 20071121
  Transmission Date: 20090109
  Serious: Yes (Other)
  Sender: FDA-Public Use
  Company Number: 2007-01156FE

PATIENT
  Sex: Female

DRUGS (2)
  1. LUTRELEF (LUTRELEF) (GONADORELIN ACETATE) [Suspect]
     Indication: INFERTILITY
     Dosage: IV
     Route: 042
     Dates: start: 20071120, end: 20071120
  2. BETADINE [Suspect]
     Indication: INFECTION PROPHYLAXIS
     Dosage: TO
     Dates: start: 20071120, end: 20071120

REACTIONS (3)
  - ANGIOEDEMA [None]
  - IODINE ALLERGY [None]
  - LARYNGEAL OEDEMA [None]
